FAERS Safety Report 15036122 (Version 1)
Quarter: 2018Q2

REPORT INFORMATION
  Report Type: Spontaneous
  Country: US (occurrence: US)
  Receive Date: 20180530
  Receipt Date: 20180530
  Transmission Date: 20180711
  Serious: Yes (Life-Threatening, Other)
  Sender: FDA-Public Use
  Company Number: None

PATIENT
  Age: 52 Year
  Sex: Female
  Weight: 71.67 kg

DRUGS (17)
  1. BIOTIN [Concomitant]
     Active Substance: BIOTIN
  2. PREDNISONE. [Concomitant]
     Active Substance: PREDNISONE
  3. MVI [Concomitant]
     Active Substance: VITAMINS
  4. FOLIC ACID. [Concomitant]
     Active Substance: FOLIC ACID
  5. ALEVE [Concomitant]
     Active Substance: NAPROXEN SODIUM
  6. NASONEX [Concomitant]
     Active Substance: MOMETASONE FUROATE
  7. PEPCID [Concomitant]
     Active Substance: FAMOTIDINE
  8. COMBIVENT [Concomitant]
     Active Substance: ALBUTEROL SULFATE\IPRATROPIUM BROMIDE
  9. PREVACID [Concomitant]
     Active Substance: LANSOPRAZOLE
  10. LISINOPRIL 10MG TABLETS [Suspect]
     Active Substance: LISINOPRIL
     Indication: HYPERTENSION
     Dosage: ?          QUANTITY:1 DF DOSAGE FORM;?
     Route: 048
     Dates: end: 20170111
  11. XOPENEX [Concomitant]
     Active Substance: LEVALBUTEROL HYDROCHLORIDE
  12. VITAMIN B12 [Concomitant]
     Active Substance: CYANOCOBALAMIN
  13. MOTRIN [Concomitant]
     Active Substance: IBUPROFEN
  14. CALCIUM CITRATE [Concomitant]
     Active Substance: CALCIUM CITRATE
  15. BENADRYL [Concomitant]
     Active Substance: DIPHENHYDRAMINE HYDROCHLORIDE
  16. ZYRTEC [Concomitant]
     Active Substance: CETIRIZINE HYDROCHLORIDE
  17. ZOFRAN [Concomitant]
     Active Substance: ONDANSETRON HYDROCHLORIDE

REACTIONS (11)
  - Obstructive airways disorder [None]
  - Impaired work ability [None]
  - Angioedema [None]
  - Hypersensitivity [None]
  - Dizziness [None]
  - Paraesthesia [None]
  - Dyspnoea [None]
  - Dysphonia [None]
  - Fall [None]
  - Swelling face [None]
  - Hypoaesthesia [None]

NARRATIVE: CASE EVENT DATE: 20170110
